FAERS Safety Report 5929447-9 (Version None)
Quarter: 2008Q4

REPORT INFORMATION
  Report Type: 
  Country: None (occurrence: None)
  Receive Date: 20081024
  Receipt Date: 20081020
  Transmission Date: 20090506
  Serious: Yes (Hospitalization)
  Sender: FDA-Public Use
  Company Number: US-ELI_LILLY_AND_COMPANY-US200810005515

PATIENT
  Sex: Female

DRUGS (2)
  1. HUMULIN R [Suspect]
     Dosage: UNK, UNK
  2. HUMULIN R [Suspect]

REACTIONS (3)
  - HOSPITALISATION [None]
  - HYPOGLYCAEMIA [None]
  - INCORRECT DOSE ADMINISTERED [None]
